FAERS Safety Report 6433053-X (Version None)
Quarter: 2009Q4

REPORT INFORMATION
  Report Type: 
  Country: None (occurrence: None)
  Receive Date: 20091109
  Receipt Date: 20091104
  Transmission Date: 20100525
  Serious: Yes (Hospitalization)
  Sender: FDA-Public Use
  Company Number: FR-ELI_LILLY_AND_COMPANY-FR200911000822

PATIENT
  Sex: Male

DRUGS (5)
  1. GEMZAR [Suspect]
     Indication: BILE DUCT CANCER
     Dosage: 1577 MG, UNKNOWN
     Route: 042
     Dates: start: 20090921, end: 20090921
  2. ELOXATIN [Concomitant]
     Indication: BILE DUCT CANCER
     Dosage: 133.5 MG, UNKNOWN
     Route: 042
     Dates: start: 20090922, end: 20090922
  3. POLARAMINE [Concomitant]
     Indication: SUPPLEMENTATION THERAPY
  4. DEXAMETHASONE [Concomitant]
     Indication: SUPPLEMENTATION THERAPY
  5. ZOPHREN [Concomitant]
     Indication: SUPPLEMENTATION THERAPY

REACTIONS (2)
  - TACHYCARDIA [None]
  - TREMOR [None]
